FAERS Safety Report 22362277 (Version 1)
Quarter: 2023Q2

REPORT INFORMATION
  Report Type: Spontaneous
  Country: CA (occurrence: CA)
  Receive Date: 20230524
  Receipt Date: 20230524
  Transmission Date: 20230721
  Serious: Yes (Other)
  Sender: FDA-Public Use
  Company Number: CA-PFIZER INC-202300193580

PATIENT
  Age: 28 Month
  Sex: Female

DRUGS (2)
  1. METHOTREXATE SODIUM [Suspect]
     Active Substance: METHOTREXATE SODIUM
     Indication: Juvenile idiopathic arthritis
     Dosage: 1 DF ,MAXIMUM DOSE X 6 MONTHS
     Route: 058
  2. NAPROSYN [Concomitant]
     Active Substance: NAPROXEN
     Dosage: UNK

REACTIONS (9)
  - Ear tube insertion [Unknown]
  - Pain [Unknown]
  - Arthropathy [Unknown]
  - Synovitis [Unknown]
  - Tenosynovitis [Unknown]
  - Gait disturbance [Not Recovered/Not Resolved]
  - Weight increased [Unknown]
  - Off label use [Unknown]
  - Drug ineffective for unapproved indication [Unknown]

NARRATIVE: CASE EVENT DATE: 20230101
